FAERS Safety Report 9623039 (Version 1)
Quarter: 2013Q4

REPORT INFORMATION
  Report Type: Spontaneous
  Country: US (occurrence: US)
  Receive Date: 20131015
  Receipt Date: 20131015
  Transmission Date: 20140711
  Serious: Yes (Hospitalization)
  Sender: FDA-Public Use
  Company Number: US-TEVA-437587USA

PATIENT
  Age: 59 Year
  Sex: Female

DRUGS (11)
  1. QVAR [Suspect]
     Indication: PRODUCT USED FOR UNKNOWN INDICATION
     Dates: start: 201301
  2. VENTOLIN [Suspect]
     Indication: DYSPNOEA
     Dosage: 1 PUFF AS REQUIRED
     Dates: start: 201304
  3. ADVAIR [Suspect]
     Indication: PRODUCT USED FOR UNKNOWN INDICATION
     Dates: start: 200805, end: 2013
  4. ADVAIR [Suspect]
     Dates: start: 2013
  5. BUSPAR [Concomitant]
  6. LEXAPRO [Concomitant]
  7. TRAZODONE [Concomitant]
  8. LASIX [Concomitant]
  9. METOPROLOL [Concomitant]
  10. METHOCARBAMOL [Concomitant]
  11. TRAMADOL [Concomitant]

REACTIONS (4)
  - Dyspnoea [Unknown]
  - Pleural effusion [Unknown]
  - Respiratory disorder [Unknown]
  - Drug ineffective [Unknown]
